FAERS Safety Report 5020760-9 (Version None)
Quarter: 2006Q2

REPORT INFORMATION
  Report Type: 
  Country: None (occurrence: None)
  Receive Date: 20060608
  Receipt Date: 20060530
  Transmission Date: 20061013
  Serious: Yes (Hospitalization)
  Sender: FDA-Public Use
  Company Number: US-JNJFOC-20060506471

PATIENT
  Sex: Male
  Weight: 111.13 kg

DRUGS (2)
  1. REMICADE [Suspect]
     Indication: CROHN'S DISEASE
  2. VITAMIN B-12 [Concomitant]
     Indication: ENERGY INCREASED

REACTIONS (2)
  - INFECTION IN AN IMMUNOCOMPROMISED HOST [None]
  - PERIRECTAL ABSCESS [None]
